APPROVED DRUG PRODUCT: POSACONAZOLE
Active Ingredient: POSACONAZOLE
Strength: 100MG
Dosage Form/Route: TABLET, DELAYED RELEASE;ORAL
Application: A212500 | Product #001 | TE Code: AB
Applicant: DR REDDYS LABORATORIES LTD
Approved: Apr 7, 2022 | RLD: No | RS: No | Type: RX